FAERS Safety Report 5299925-7 (Version None)
Quarter: 2007Q2

REPORT INFORMATION
  Report Type: 
  Country: None (occurrence: None)
  Receive Date: 20070410
  Receipt Date: 20070404
  Transmission Date: 20071010
  Serious: Yes (Hospitalization)
  Sender: FDA-Public Use
  Company Number: B0460892A

PATIENT
  Age: 83 Year
  Sex: Female

DRUGS (13)
  1. AMOXIL [Suspect]
     Indication: PREMEDICATION
     Dosage: 2 GRAM (S) SINGLE DOSE ORAL
     Route: 048
     Dates: start: 20061207, end: 20061207
  2. ACETAZOLAMIDE [Concomitant]
  3. PARACETAMOL [Concomitant]
  4. PROPOFOL [Concomitant]
  5. LIGNOCAINE HYDROCHLORIDE [Concomitant]
  6. METHOTREXATE [Concomitant]
  7. HYDROXYZINE HYDROCHLORIDE [Concomitant]
  8. FOLIC ACID [Concomitant]
  9. FRUSEMIDE [Concomitant]
  10. POTASSIUM CHLORIDE [Concomitant]
  11. TARDYFERON [Concomitant]
  12. ATENOLOL [Concomitant]
  13. SIMVASTATIN [Concomitant]

REACTIONS (8)
  - ACUTE GENERALISED EXANTHEMATOUS PUSTULOSIS [None]
  - CARDIAC FAILURE [None]
  - DISEASE RECURRENCE [None]
  - INFLAMMATION [None]
  - NORMOCHROMIC NORMOCYTIC ANAEMIA [None]
  - PEMPHIGOID [None]
  - RENAL IMPAIRMENT [None]
  - SKIN TEST POSITIVE [None]
